FAERS Safety Report 25445636 (Version 1)
Quarter: 2025Q2

REPORT INFORMATION
  Report Type: Spontaneous
  Country: AU (occurrence: AU)
  Receive Date: 20250617
  Receipt Date: 20250617
  Transmission Date: 20250717
  Serious: Yes (Other)
  Sender: TAKEDA
  Company Number: AU-TAKEDA-2025TUS052874

PATIENT
  Age: 22 Year
  Sex: Male

DRUGS (1)
  1. VYVANSE [Suspect]
     Active Substance: LISDEXAMFETAMINE DIMESYLATE
     Indication: Attention deficit hyperactivity disorder
     Dosage: 30 MILLIGRAM, QD
     Dates: start: 20250204

REACTIONS (5)
  - Amnesia [Recovered/Resolved with Sequelae]
  - Condition aggravated [Unknown]
  - Drug ineffective [Recovered/Resolved with Sequelae]
  - Executive dysfunction [Recovered/Resolved with Sequelae]
  - Exercise tolerance decreased [Unknown]

NARRATIVE: CASE EVENT DATE: 20250205
